FAERS Safety Report 5051054-3 (Version None)
Quarter: 2006Q3

REPORT INFORMATION
  Report Type: 
  Country: None (occurrence: None)
  Receive Date: 20060714
  Receipt Date: 20060705
  Transmission Date: 20061208
  Serious: Yes (Hospitalization, Other)
  Sender: FDA-Public Use
  Company Number: PHNU2006DE02453

PATIENT
  Sex: Female

DRUGS (9)
  1. TRILEPTAL [Suspect]
     Dosage: DOSAGE CHANGED
  2. TRILEPTAL [Suspect]
     Dosage: 300 MG, BID
     Dates: start: 20060704, end: 20060704
  3. TRILEPTAL [Suspect]
     Dosage: 1200 MG/D
     Dates: start: 20060705
  4. TRILEPTAL [Suspect]
     Dosage: 300 MG, BID
  5. CARBAMAZEPINE [Suspect]
     Dosage: DOSAGE CHANGED
  6. CARBAMAZEPINE [Suspect]
     Dosage: 2400 MG/D (1000-0-1400)
     Dates: start: 20060704, end: 20060704
  7. CARBAMAZEPINE [Suspect]
     Dosage: 1200 MG/D
     Dates: start: 20060705
  8. CARBAMAZEPINE [Suspect]
     Dosage: 2400 MG/D (1000-0-1400)
  9. NEURONTIN [Concomitant]
     Dates: start: 20060101

REACTIONS (5)
  - ANXIETY [None]
  - CONVULSION [None]
  - COORDINATION ABNORMAL [None]
  - DIZZINESS [None]
  - TACHYCARDIA [None]
